FAERS Safety Report 5187188-2 (Version None)
Quarter: 2006Q4

REPORT INFORMATION
  Report Type: 
  Country: None (occurrence: None)
  Receive Date: 20061214
  Receipt Date: 20061205
  Transmission Date: 20070319
  Serious: Yes (Other)
  Sender: FDA-Public Use
  Company Number: 2006150464

PATIENT
  Sex: Female

DRUGS (4)
  1. XALATAN [Suspect]
     Indication: GLAUCOMA
  2. RAMIPRIL [Concomitant]
  3. ATORVASTATIN CALCIUM [Concomitant]
  4. MULTI-VITAMINS [Concomitant]

REACTIONS (1)
  - INTRAOCULAR PRESSURE INCREASED [None]
